FAERS Safety Report 8173800-2 (Version None)
Quarter: 2012Q1

REPORT INFORMATION
  Report Type: 
  Country: None (occurrence: None)
  Receive Date: 20120229
  Receipt Date: 20120215
  Transmission Date: 20120608
  Serious: Yes (Other)
  Sender: FDA-Public Use
  Company Number: US-ELI_LILLY_AND_COMPANY-US201112003003

PATIENT
  Age: 65 Year
  Sex: Male

DRUGS (3)
  1. HYDROCODONE [Concomitant]
     Indication: PAIN
     Dosage: 10 MG, EVERY 4 HRS
     Dates: start: 20111101
  2. CYMBALTA [Suspect]
     Dosage: 20 MG, SINGLE
     Dates: start: 20111101, end: 20111101
  3. HYDROMORPHONE HCL [Concomitant]
     Indication: PAIN
     Dosage: UNK
     Dates: start: 20111101

REACTIONS (2)
  - SUICIDAL IDEATION [None]
  - HOMICIDAL IDEATION [None]
